FAERS Safety Report 19676835 (Version 1)
Quarter: 2021Q3

REPORT INFORMATION
  Report Type: Spontaneous
  Country: US (occurrence: US)
  Receive Date: 20210809
  Receipt Date: 20210809
  Transmission Date: 20211014
  Serious: No
  Sender: FDA-Public Use
  Company Number: US-PFIZER INC-202100956760

PATIENT
  Sex: Female

DRUGS (2)
  1. DEPO?PROVERA [Interacting]
     Active Substance: MEDROXYPROGESTERONE ACETATE
  2. TOZINAMERAN. [Suspect]
     Active Substance: TOZINAMERAN
     Indication: COVID-19 IMMUNISATION
     Dosage: DOSE 2, SINGLE

REACTIONS (2)
  - Potentiating drug interaction [Unknown]
  - Heavy menstrual bleeding [Unknown]
